FAERS Safety Report 9664263 (Version 4)
Quarter: 2013Q4

REPORT INFORMATION
  Report Type: Spontaneous
  Country: BG (occurrence: BG)
  Receive Date: 20131101
  Receipt Date: 20131218
  Transmission Date: 20140711
  Serious: Yes (Death, Hospitalization, Other)
  Sender: FDA-Public Use
  Company Number: BG-SA-2013SA110321

PATIENT
  Age: 70 Year
  Sex: Male

DRUGS (3)
  1. CEREZYME [Suspect]
     Indication: GAUCHER^S DISEASE
     Route: 042
  2. CEREZYME [Suspect]
     Indication: GAUCHER^S DISEASE
     Route: 042
  3. SINTROM [Concomitant]

REACTIONS (11)
  - Cardiac failure acute [Fatal]
  - Cardiopulmonary failure [Unknown]
  - Pulmonary hypertension [Unknown]
  - Mitral valve incompetence [Unknown]
  - Tricuspid valve incompetence [Unknown]
  - Atrial fibrillation [Unknown]
  - Renal failure chronic [Unknown]
  - Hypertonia [Unknown]
  - Bundle branch block left [Unknown]
  - Anaemia [Unknown]
  - Gout [Unknown]
